FAERS Safety Report 7997738-6 (Version None)
Quarter: 2011Q4

REPORT INFORMATION
  Report Type: 
  Country: None (occurrence: None)
  Receive Date: 20111221
  Receipt Date: 20111219
  Transmission Date: 20120403
  Serious: Yes (Death, Hospitalization, Other)
  Sender: FDA-Public Use
  Company Number: US-ROXANE LABORATORIES, INC.-2011-RO-00046RO

PATIENT
  Sex: Female

DRUGS (4)
  1. DEXAMETHASONE [Suspect]
     Dosage: 2 MG
     Dates: start: 20101207, end: 20101207
  2. DEXAMETHASONE [Suspect]
     Indication: BRAIN OEDEMA
     Dosage: 8 MG
     Dates: start: 20101115, end: 20101202
  3. DEXAMETHASONE [Suspect]
     Dosage: 4 MG
     Dates: start: 20101203, end: 20101205
  4. DEXAMETHASONE [Suspect]
     Dosage: 2 MG
     Dates: start: 20101209, end: 20101209

REACTIONS (16)
  - BLOOD GLUCOSE INCREASED [None]
  - BLOOD ALBUMIN DECREASED [None]
  - RENAL FAILURE [None]
  - LIVER DISORDER [None]
  - SEPSIS [None]
  - DISEASE PROGRESSION [None]
  - MYOPATHY [None]
  - ABDOMINAL PAIN UPPER [None]
  - DEHYDRATION [None]
  - DEATH [None]
  - MUSCULAR WEAKNESS [None]
  - UNEVALUABLE EVENT [None]
  - OESOPHAGEAL ULCER [None]
  - PAIN [None]
  - INTESTINAL OBSTRUCTION [None]
  - ASCITES [None]
